FAERS Safety Report 6698501-9 (Version None)
Quarter: 2010Q2

REPORT INFORMATION
  Report Type: 
  Country: None (occurrence: None)
  Receive Date: 20100427
  Receipt Date: 20100420
  Transmission Date: 20101027
  Serious: Yes (Other)
  Sender: FDA-Public Use
  Company Number: US-GENZYME-CERZ-1001133

PATIENT
  Sex: Female
  Weight: 88 kg

DRUGS (1)
  1. CEREZYME [Suspect]
     Indication: GAUCHER'S DISEASE
     Dosage: 50 U/KG, UNK
     Dates: start: 19970101

REACTIONS (4)
  - ACTIVATED PARTIAL THROMBOPLASTIN TIME PROLONGED [None]
  - HIP ARTHROPLASTY [None]
  - INTERNATIONAL NORMALISED RATIO INCREASED [None]
  - MEDICAL DEVICE COMPLICATION [None]
